FAERS Safety Report 10195622 (Version 1)
Quarter: 2014Q2

REPORT INFORMATION
  Report Type: Spontaneous
  Country: CN (occurrence: CN)
  Receive Date: 20140527
  Receipt Date: 20140527
  Transmission Date: 20141212
  Serious: Yes (Other)
  Sender: FDA-Public Use
  Company Number: CN-009507513-1405CHN011041

PATIENT
  Age: 81 Year
  Sex: Female

DRUGS (2)
  1. TIENAM [Suspect]
     Indication: LUNG INFECTION
     Dosage: 0.5 G ONCE EVERY 6 HOURS
     Route: 042
     Dates: start: 20101213, end: 201012
  2. PIPERACILLIN SODIUM (+) TAZOBACTAM SODIUM [Concomitant]
     Indication: LUNG INFECTION
     Dosage: UNK
     Dates: start: 201012, end: 20101212

REACTIONS (1)
  - Epilepsy [Recovered/Resolved]
